FAERS Safety Report 15933578 (Version 6)
Quarter: 2019Q4

REPORT INFORMATION
  Report Type: Spontaneous
  Country: CZ (occurrence: CZ)
  Receive Date: 20190207
  Receipt Date: 20191220
  Transmission Date: 20200122
  Serious: Yes (Other)
  Sender: FDA-Public Use
  Company Number: CZ-MYLANLABS-2019M1010823

PATIENT
  Age: 55 Year
  Sex: Male

DRUGS (4)
  1. FOLIC ACID. [Concomitant]
     Active Substance: FOLIC ACID
     Dosage: UNK
  2. PREDNISONE. [Suspect]
     Active Substance: PREDNISONE
     Indication: SARCOIDOSIS
     Dosage: 30 MILLIGRAM, QD (DOSE DECREASE UP  5 MG EVERY 14 DAYS)
     Route: 048
     Dates: start: 201505
  3. METHOTREXATE. [Suspect]
     Active Substance: METHOTREXATE
     Indication: SARCOIDOSIS
     Dosage: 10 MILLIGRAM, QW
     Route: 058
     Dates: start: 201505, end: 201506
  4. METHOTREXATE. [Suspect]
     Active Substance: METHOTREXATE
     Indication: SARCOIDOSIS
     Dosage: UNK UNK, QW
     Route: 048
     Dates: start: 201505

REACTIONS (6)
  - Steroid diabetes [Unknown]
  - Product use in unapproved indication [Unknown]
  - Polyneuropathy [Unknown]
  - Cataract [Unknown]
  - Chest X-ray abnormal [Unknown]
  - Sarcoidosis [Unknown]
